FAERS Safety Report 7817777-5 (Version None)
Quarter: 2011Q4

REPORT INFORMATION
  Report Type: 
  Country: None (occurrence: None)
  Receive Date: 20111017
  Receipt Date: 20111011
  Transmission Date: 20120403
  Serious: Yes (Hospitalization, Other)
  Sender: FDA-Public Use
  Company Number: US-PFIZER INC-2009304535

PATIENT
  Sex: Female
  Weight: 73.923 kg

DRUGS (10)
  1. PLAVIX [Suspect]
     Indication: CORONARY ARTERY BYPASS
  2. METOPROLOL [Concomitant]
     Indication: BLOOD PRESSURE ABNORMAL
     Dosage: 50 MG, DAILY
  3. VYTORIN [Concomitant]
     Dosage: EZETIMIBE10MG, SIMVASTATIN 10 MG, DAILY
     Route: 048
  4. MICARDIS [Concomitant]
     Indication: BLOOD PRESSURE ABNORMAL
     Dosage: 80 MG, DAILY
     Route: 048
  5. HYDROCHLOROTHIAZIDE [Concomitant]
     Dosage: 12.5 MG, DAILY
  6. CELEBREX [Suspect]
     Indication: ARTHRALGIA
     Dosage: UNK
     Route: 048
     Dates: start: 20070101
  7. CELEBREX [Suspect]
     Indication: ARTHRITIS
  8. ULTRAM [Concomitant]
     Indication: ARTHRALGIA
     Dosage: 50 MG, AS NEEDED
     Route: 048
  9. ASPIRIN [Suspect]
     Dosage: UNK
  10. PLAVIX [Suspect]
     Indication: ATRIAL FIBRILLATION
     Dosage: UNK
     Route: 048
     Dates: start: 20081201

REACTIONS (3)
  - ATRIAL FIBRILLATION [None]
  - CORONARY ARTERY BYPASS [None]
  - GASTRIC HAEMORRHAGE [None]
